FAERS Safety Report 5373833-5 (Version None)
Quarter: 2007Q2

REPORT INFORMATION
  Report Type: 
  Country: None (occurrence: None)
  Receive Date: 20070628
  Receipt Date: 20070514
  Transmission Date: 20071010
  Serious: Yes (Hospitalization)
  Sender: FDA-Public Use
  Company Number: JP-ASTRAZENECA-2007AP02482

PATIENT
  Age: 26587 Day
  Sex: Male
  Weight: 65.4 kg

DRUGS (15)
  1. CRESTOR [Suspect]
     Indication: HYPERCHOLESTEROLAEMIA
     Route: 048
     Dates: start: 20060418, end: 20070228
  2. ALLOPURINOL [Concomitant]
     Indication: HYPERURICAEMIA
     Route: 048
     Dates: start: 20010917
  3. ADALAT [Concomitant]
     Indication: HYPERTENSION
     Route: 048
     Dates: start: 20011112
  4. BUFFERIN [Concomitant]
     Indication: ANGINA PECTORIS
     Route: 048
     Dates: start: 20020605
  5. BLOPRESS [Concomitant]
     Indication: HYPERTENSION
     Route: 048
     Dates: start: 20021112
  6. TENORMIN [Concomitant]
     Indication: ANGINA PECTORIS
     Route: 048
     Dates: start: 20041005
  7. TICLOPIDINE HCL [Concomitant]
     Indication: ANGINA PECTORIS
     Route: 048
     Dates: start: 20041112
  8. PARIET [Concomitant]
     Indication: PROPHYLAXIS AGAINST GASTROINTESTINAL ULCER
     Route: 048
     Dates: start: 20050908
  9. ITOROL [Concomitant]
     Indication: ANGINA PECTORIS
     Route: 048
     Dates: start: 20060420
  10. BANAN [Concomitant]
     Route: 048
     Dates: start: 20051020, end: 20070129
  11. PURSENNID [Concomitant]
     Indication: CONSTIPATION PROPHYLAXIS
     Route: 048
     Dates: start: 20060828
  12. ADONA [Concomitant]
     Indication: BLADDER CANCER
     Route: 048
     Dates: start: 20060830, end: 20060919
  13. SM [Concomitant]
     Indication: BLADDER CANCER
     Route: 048
     Dates: start: 20060830, end: 20060919
  14. LACSPAN [Concomitant]
     Indication: BLADDER CANCER
     Route: 048
     Dates: start: 20060830, end: 20060919
  15. ALLEGRA [Concomitant]
     Indication: RHINITIS ALLERGIC
     Route: 048
     Dates: start: 20061026, end: 20070501

REACTIONS (3)
  - BLADDER CANCER RECURRENT [None]
  - DERMATOMYOSITIS [None]
  - GASTRIC CANCER [None]
